FAERS Safety Report 8138175-3 (Version None)
Quarter: 2012Q1

REPORT INFORMATION
  Report Type: 
  Country: None (occurrence: None)
  Receive Date: 20120215
  Receipt Date: 20120208
  Transmission Date: 20120608
  Serious: Yes (Hospitalization)
  Sender: FDA-Public Use
  Company Number: US-BAYER-2011-075696

PATIENT
  Age: 24 Year
  Sex: Female
  Weight: 90.703 kg

DRUGS (3)
  1. VICODIN [Concomitant]
  2. YASMIN [Suspect]
     Dosage: UNK
     Dates: start: 20040101
  3. IBUPROFEN [Concomitant]
     Dosage: UNK
     Dates: start: 20040101

REACTIONS (4)
  - INJURY [None]
  - ABDOMINAL PAIN [None]
  - CHOLECYSTECTOMY [None]
  - CHOLECYSTITIS CHRONIC [None]
